FAERS Safety Report 19907698 (Version 1)
Quarter: 2021Q3

REPORT INFORMATION
  Report Type: Spontaneous
  Country: IT (occurrence: IT)
  Receive Date: 20210930
  Receipt Date: 20210930
  Transmission Date: 20211014
  Serious: Yes (Hospitalization, Other)
  Sender: FDA-Public Use
  Company Number: IT-009507513-2109ITA005437

PATIENT
  Age: 38 Year
  Sex: Female

DRUGS (1)
  1. INTERFERON ALFA?2B [Suspect]
     Active Substance: INTERFERON ALFA-2B
     Indication: THROMBOCYTOSIS
     Dosage: 3 MILLION INTERNATIONAL UNIT, QOD
     Route: 058
     Dates: start: 201602, end: 201811

REACTIONS (1)
  - Tuberculosis [Unknown]
